FAERS Safety Report 11048753 (Version 1)
Quarter: 2015Q2

REPORT INFORMATION
  Report Type: Spontaneous
  Country: BR (occurrence: BR)
  Receive Date: 20150420
  Receipt Date: 20150420
  Transmission Date: 20150821
  Serious: Yes (Other)
  Sender: FDA-Public Use
  Company Number: BR-PFIZER INC-2014217285

PATIENT
  Age: 61 Year
  Sex: Female
  Weight: 68 kg

DRUGS (10)
  1. RIVOTRIL [Concomitant]
     Active Substance: CLONAZEPAM
     Indication: DEPRESSION
     Dosage: 4 MG, DAILY
     Dates: start: 1990
  2. ONBRIZE [Concomitant]
     Active Substance: INDACATEROL MALEATE
     Indication: EMPHYSEMA
     Dosage: 150 MG, UNK
     Dates: start: 2011
  3. OMEPRAZOLE. [Concomitant]
     Active Substance: OMEPRAZOLE
     Indication: GASTRIC DISORDER
     Dosage: 1 TABLET DAILY, AS NEEDED
     Dates: start: 2012
  4. CHAMPIX [Suspect]
     Active Substance: VARENICLINE TARTRATE
     Indication: SMOKING CESSATION THERAPY
     Dosage: UNK, WHEN SHE WOKE UP
     Route: 048
     Dates: start: 2014, end: 201407
  5. LIMBITROL [Concomitant]
     Active Substance: AMITRIPTYLINE\CHLORDIAZEPOXIDE
     Indication: ANXIETY
  6. GABANEURIN [Concomitant]
     Indication: SPINAL DISORDER
  7. CHAMPIX [Suspect]
     Active Substance: VARENICLINE TARTRATE
     Dosage: UNK
     Route: 048
     Dates: start: 201407
  8. GABANEURIN [Concomitant]
     Indication: INTERVERTEBRAL DISC PROTRUSION
     Dosage: 300 MG, DAILY
     Dates: start: 201312
  9. SPIRIVA [Concomitant]
     Active Substance: TIOTROPIUM BROMIDE MONOHYDRATE
     Indication: EMPHYSEMA
     Dosage: 2.5 UG, UNK
     Dates: start: 2011
  10. LIMBITROL [Concomitant]
     Active Substance: AMITRIPTYLINE\CHLORDIAZEPOXIDE
     Indication: DEPRESSION
     Dosage: 4 DF, DAILY
     Dates: start: 1990

REACTIONS (10)
  - Anxiety [Not Recovered/Not Resolved]
  - Abdominal pain upper [Recovered/Resolved]
  - Eczema [Not Recovered/Not Resolved]
  - Retching [Unknown]
  - Appetite disorder [Unknown]
  - Fear [Not Recovered/Not Resolved]
  - Malaise [Not Recovered/Not Resolved]
  - Drug dependence [Not Recovered/Not Resolved]
  - Nausea [Recovered/Resolved]
  - Drug ineffective [Unknown]

NARRATIVE: CASE EVENT DATE: 2014
